FAERS Safety Report 6608710-2 (Version None)
Quarter: 2010Q1

REPORT INFORMATION
  Report Type: 
  Country: None (occurrence: None)
  Receive Date: 20100301
  Receipt Date: 20100217
  Transmission Date: 20100710
  Serious: Yes (Other)
  Sender: FDA-Public Use
  Company Number: PHHY2010US09888

PATIENT
  Sex: Male

DRUGS (1)
  1. RECLAST [Suspect]
     Indication: OSTEOPOROSIS
     Dosage: UNK
     Dates: start: 20100202

REACTIONS (7)
  - ANXIETY [None]
  - HEART RATE INCREASED [None]
  - HYPERTHERMIA [None]
  - INFLUENZA LIKE ILLNESS [None]
  - LUNG INFILTRATION [None]
  - MUSCLE SPASMS [None]
  - RESPIRATORY RATE INCREASED [None]
